FAERS Safety Report 13133395 (Version 1)
Quarter: 2017Q1

REPORT INFORMATION
  Report Type: Spontaneous
  Country: US (occurrence: US)
  Receive Date: 20170119
  Receipt Date: 20170119
  Transmission Date: 20170428
  Serious: No
  Sender: FDA-Public Use
  Company Number: None

PATIENT
  Age: 75 Year
  Sex: Female

DRUGS (3)
  1. XIFAXAN [Suspect]
     Active Substance: RIFAXIMIN
     Indication: PAIN
  2. XIFAXAN [Suspect]
     Active Substance: RIFAXIMIN
     Indication: DIABETIC DERMOPATHY
  3. XIFAXAN [Suspect]
     Active Substance: RIFAXIMIN
     Indication: GASTRITIS

REACTIONS (2)
  - Nausea [None]
  - Wrong technique in product usage process [None]

NARRATIVE: CASE EVENT DATE: 20161031
